FAERS Safety Report 20010248 (Version 3)
Quarter: 2021Q4

REPORT INFORMATION
  Report Type: Spontaneous
  Country: RU (occurrence: RU)
  Receive Date: 20211028
  Receipt Date: 20211210
  Transmission Date: 20220303
  Serious: Yes (Hospitalization)
  Sender: FDA-Public Use
  Company Number: RU-AMGEN-RUSSP2021164597

PATIENT

DRUGS (10)
  1. APREMILAST [Suspect]
     Active Substance: APREMILAST
     Indication: Rheumatic disorder
     Dosage: UNK
     Route: 065
  2. APREMILAST [Suspect]
     Active Substance: APREMILAST
     Indication: COVID-19
  3. APREMILAST [Suspect]
     Active Substance: APREMILAST
     Indication: Off label use
  4. ETANERCEPT [Suspect]
     Active Substance: ETANERCEPT
     Indication: Rheumatic disorder
     Dosage: UNK
     Route: 065
  5. ETANERCEPT [Suspect]
     Active Substance: ETANERCEPT
     Indication: COVID-19
  6. ETANERCEPT [Suspect]
     Active Substance: ETANERCEPT
     Indication: Off label use
  7. METHOTREXATE [Concomitant]
     Active Substance: METHOTREXATE
     Dosage: UNK
  8. LEFLUNOMIDE [Concomitant]
     Active Substance: LEFLUNOMIDE
     Dosage: UNK
  9. TOFACITINIB [Concomitant]
     Active Substance: TOFACITINIB
     Dosage: UNK
  10. BARICITINIB [Concomitant]
     Active Substance: BARICITINIB
     Dosage: UNK

REACTIONS (2)
  - COVID-19 [Unknown]
  - Off label use [Unknown]
